FAERS Safety Report 8771720 (Version 1)
Quarter: 2012Q4

REPORT INFORMATION
  Report Type: 
  Country: US (occurrence: US)
  Receive Date: 20120905
  Receipt Date: 20120905
  Transmission Date: 20130627
  Serious: No
  Sender: FDA-Public Use
  Company Number: US-BAYER-2012-090904

PATIENT
  Sex: Female

DRUGS (3)
  1. ONE A DAY WOMEN^S 50+ ADVANTAGE [Suspect]
     Dosage: TAB
     Route: 048
  2. BAYER ASPIRIN REGIMEN ADULT LOW STRENGTH [Suspect]
     Dosage: TAB, QD
     Route: 048
  3. ALEVE CAPLET/TABLET,MIDOL EXTENDED RELIEF CAPLET [Suspect]
     Dosage: TAB
     Route: 048

REACTIONS (1)
  - Ocular hyperaemia [None]
